FAERS Safety Report 7341224-3 (Version None)
Quarter: 2011Q1

REPORT INFORMATION
  Report Type: 
  Country: None (occurrence: None)
  Receive Date: 20110309
  Receipt Date: 20110301
  Transmission Date: 20110831
  Serious: Yes (Life-Threatening, Hospitalization)
  Sender: FDA-Public Use
  Company Number: PT-BRISTOL-MYERS SQUIBB COMPANY-15590151

PATIENT
  Age: 16 Year
  Sex: Female

DRUGS (3)
  1. KIVEXA [Concomitant]
     Dates: start: 20110101
  2. PREZISTA [Concomitant]
     Dates: start: 20110101
  3. EFAVIRENZ [Suspect]
     Indication: VERTICAL INFECTION TRANSMISSION
     Dosage: THERAPY RESTARTED ON 01MAR11.
     Route: 048
     Dates: start: 20110126

REACTIONS (5)
  - OVERDOSE [None]
  - SPEECH DISORDER [None]
  - SUICIDE ATTEMPT [None]
  - DIZZINESS [None]
  - NAUSEA [None]
